FAERS Safety Report 9515428 (Version 1)
Quarter: 2013Q3

REPORT INFORMATION
  Report Type: Report from Study
  Country: BR (occurrence: BR)
  Receive Date: 20130911
  Receipt Date: 20130911
  Transmission Date: 20140515
  Serious: Yes (Hospitalization, Other)
  Sender: FDA-Public Use
  Company Number: PHHY2013BR097882

PATIENT
  Age: 13 Year
  Sex: Male

DRUGS (9)
  1. BUDESONIDE [Suspect]
     Indication: ASTHMA
     Dosage: 800 UG, DAILY
     Route: 045
  2. BUDESONIDE [Suspect]
     Dosage: 1600 UG, DAILY
  3. BUDESONIDE [Suspect]
     Dosage: 800 UG, DAILY
     Route: 045
  4. OXCARBAZEPINE [Suspect]
     Indication: CONVULSION
  5. FORMOTEROL [Suspect]
  6. BRONCHODILATORS [Suspect]
  7. MONTELUKAST [Suspect]
  8. PREDNISOLONE [Suspect]
     Indication: ASTHMA
  9. OMALIZUMAB [Concomitant]
     Indication: ASTHMA
     Dosage: 300 MG, EVERY 28 DAYS

REACTIONS (6)
  - Obstructive airways disorder [Recovered/Resolved]
  - Asthma [Recovered/Resolved]
  - Dyspnoea [Recovered/Resolved]
  - Cough [Recovered/Resolved]
  - Wheezing [Recovered/Resolved]
  - Drug effect incomplete [Recovered/Resolved]
